FAERS Safety Report 9236138 (Version 1)
Quarter: 2013Q2

REPORT INFORMATION
  Report Type: Spontaneous
  Country: FR (occurrence: FR)
  Receive Date: 20130417
  Receipt Date: 20130417
  Transmission Date: 20140414
  Serious: Yes (Hospitalization, Other)
  Sender: FDA-Public Use
  Company Number: FR-009507513-1304FRA005076

PATIENT
  Age: 57 Year
  Sex: Male

DRUGS (14)
  1. EMEND [Suspect]
     Indication: PRODUCT USED FOR UNKNOWN INDICATION
     Dosage: 125 MG, ONCE
     Route: 048
     Dates: start: 20130311, end: 20130311
  2. EMEND [Suspect]
     Dosage: UNK
  3. EMEND [Suspect]
     Indication: PRODUCT USED FOR UNKNOWN INDICATION
     Dosage: 80 MG, QD
     Route: 048
     Dates: start: 20130312, end: 20130313
  4. FLUOROURACIL [Suspect]
     Indication: GASTRIC CANCER
     Dosage: 2200 MG, QD
     Route: 042
     Dates: start: 20130311, end: 20130312
  5. DOCETAXEL [Suspect]
     Indication: GASTRIC CANCER
     Dosage: 74 MG, UNK
     Route: 042
     Dates: start: 20130311, end: 20130311
  6. ZOPHREN (ONDANSETRON HYDROCHLORIDE) [Suspect]
     Dosage: UNK
     Route: 065
     Dates: start: 20130311, end: 20130313
  7. SOLUPRED [Suspect]
     Indication: PRODUCT USED FOR UNKNOWN INDICATION
     Dosage: UNK
     Route: 065
     Dates: start: 20130311, end: 20130313
  8. CISPLATIN [Concomitant]
     Indication: GASTRIC CANCER
     Dosage: 75 MG, QD
     Route: 042
     Dates: start: 20130222, end: 20130222
  9. KREDEX [Concomitant]
     Indication: PRODUCT USED FOR UNKNOWN INDICATION
     Dosage: 25 MG, BID
     Route: 048
     Dates: start: 201302
  10. EUPANTOL [Concomitant]
     Indication: PRODUCT USED FOR UNKNOWN INDICATION
     Dosage: 40 MG, BID
     Route: 048
  11. PRIMPERAN [Concomitant]
     Indication: PRODUCT USED FOR UNKNOWN INDICATION
     Dosage: 10 MG, PRN
     Dates: start: 20130220
  12. KARDEGIC [Concomitant]
     Indication: PRODUCT USED FOR UNKNOWN INDICATION
     Dosage: 75 MG, QD
     Route: 048
  13. TAHOR [Concomitant]
     Indication: PRODUCT USED FOR UNKNOWN INDICATION
     Dosage: 10 MG, QD
     Route: 048
     Dates: start: 201302
  14. TRIATEC (RAMIPRIL) [Concomitant]
     Indication: PRODUCT USED FOR UNKNOWN INDICATION
     Dosage: 5 MG, QD
     Route: 048

REACTIONS (1)
  - Encephalopathy [Recovered/Resolved]
